FAERS Safety Report 9405628 (Version 1)
Quarter: 2013Q3

REPORT INFORMATION
  Report Type: Spontaneous
  Country: FR (occurrence: FR)
  Receive Date: 20130717
  Receipt Date: 20130717
  Transmission Date: 20140515
  Serious: Yes (Hospitalization)
  Sender: FDA-Public Use
  Company Number: FR-ASTRAZENECA-2013SE51438

PATIENT
  Age: 28226 Day
  Sex: Female

DRUGS (10)
  1. INEXIUM [Suspect]
     Route: 048
     Dates: start: 20130614, end: 20130616
  2. COTAREG [Suspect]
     Route: 048
  3. LAMALINE [Suspect]
     Route: 048
  4. LASILIX [Suspect]
     Route: 048
  5. TOPALGIC SR [Suspect]
     Route: 048
     Dates: start: 201306, end: 20130616
  6. CODOLIPRANE ADULT [Suspect]
     Route: 048
     Dates: start: 201305, end: 20130616
  7. IPERTEN [Concomitant]
  8. ZOLPIDEM [Concomitant]
  9. SEROPLEX [Concomitant]
  10. DOLIPRANE [Concomitant]

REACTIONS (3)
  - Dehydration [Unknown]
  - Hyponatraemia [Recovered/Resolved]
  - Vomiting [Recovered/Resolved]
